FAERS Safety Report 17300750 (Version 1)
Quarter: 2020Q1

REPORT INFORMATION
  Report Type: Spontaneous
  Country: US (occurrence: US)
  Receive Date: 20200103
  Receipt Date: 20200103
  Transmission Date: 20200409
  Serious: Yes (Hospitalization)
  Sender: FDA-Public Use
  Company Number: None

PATIENT
  Sex: Female
  Weight: 14.5 kg

DRUGS (6)
  1. CYTARABINE. [Suspect]
     Active Substance: CYTARABINE
  2. DEXAMETHASONE. [Concomitant]
     Active Substance: DEXAMETHASONE
  3. METHOTREXATE. [Concomitant]
     Active Substance: METHOTREXATE
  4. ONCASPAR [Concomitant]
     Active Substance: PEGASPARGASE
  5. CYTARABINE. [Suspect]
     Active Substance: CYTARABINE
  6. VINCRISTINE SULFATE. [Concomitant]
     Active Substance: VINCRISTINE SULFATE

REACTIONS (12)
  - Tachycardia [None]
  - Drug eruption [None]
  - Staphylococcal infection [None]
  - Rash [None]
  - Back pain [None]
  - Irritability [None]
  - Malaise [None]
  - Staphylococcus test positive [None]
  - Product contamination [None]
  - Staphylococcal bacteraemia [None]
  - Angular cheilitis [None]
  - Tongue ulceration [None]

NARRATIVE: CASE EVENT DATE: 20191225
